FAERS Safety Report 6042516-0 (Version None)
Quarter: 2009Q1

REPORT INFORMATION
  Report Type: 
  Country: None (occurrence: None)
  Receive Date: 20090116
  Receipt Date: 20090109
  Transmission Date: 20090719
  Serious: Yes (Other)
  Sender: FDA-Public Use
  Company Number: US-JNJCH-2009000927

PATIENT
  Age: 81 Year
  Sex: Male
  Weight: 134.7 kg

DRUGS (3)
  1. BENGAY GREASELESS [Suspect]
     Indication: ARTHRALGIA
     Dosage: TEXT:TABLESPOON ONCE
     Route: 061
  2. PLAVIX [Concomitant]
     Indication: DRUG USE FOR UNKNOWN INDICATION
     Dosage: TEXT:UNSPECIFIED
     Route: 065
  3. LASIX [Concomitant]
     Indication: DRUG USE FOR UNKNOWN INDICATION
     Dosage: TEXT:UNSPECIFIED
     Route: 065

REACTIONS (1)
  - APPLICATION SITE BURN [None]
